FAERS Safety Report 5263949-6 (Version None)
Quarter: 2007Q1

REPORT INFORMATION
  Report Type: 
  Country: None (occurrence: None)
  Receive Date: 20070313
  Receipt Date: 20070305
  Transmission Date: 20070707
  Serious: Yes (Death, Other)
  Sender: FDA-Public Use
  Company Number: PHBS2007JP03331

PATIENT
  Age: 71 Year
  Sex: Male

DRUGS (2)
  1. CYCLOSPORINE [Suspect]
     Indication: STEM CELL TRANSPLANT
     Route: 065
  2. PREDNISOLONE [Concomitant]
     Route: 065

REACTIONS (13)
  - CHRONIC GRAFT VERSUS HOST DISEASE [None]
  - EOSINOPHILIA [None]
  - HAEMOLYTIC ANAEMIA [None]
  - PERICARDIAL EFFUSION [None]
  - PLATELET COUNT DECREASED [None]
  - PLEURAL EFFUSION [None]
  - RED BLOOD CELL ABNORMALITY [None]
  - RENAL FAILURE [None]
  - RENAL IMPAIRMENT [None]
  - RETINAL EXUDATES [None]
  - SEROSITIS [None]
  - THROMBOTIC MICROANGIOPATHY [None]
  - VISION BLURRED [None]
